FAERS Safety Report 6780982-3 (Version None)
Quarter: 2010Q2

REPORT INFORMATION
  Report Type: 
  Country: None (occurrence: None)
  Receive Date: 20100621
  Receipt Date: 20100614
  Transmission Date: 20101027
  Serious: Yes (Death, Hospitalization, Disabling)
  Sender: FDA-Public Use
  Company Number: CN-BAYER-200943950GPV

PATIENT
  Age: 67 Year
  Sex: Female
  Weight: 52 kg

DRUGS (25)
  1. SORAFENIB [Suspect]
     Indication: HEPATIC NEOPLASM MALIGNANT
     Dosage: TOTAL DAILY DOSE: 800 MG
     Route: 048
     Dates: start: 20091120, end: 20091127
  2. PLACEBO TO ERLOTINIB [Suspect]
     Indication: HEPATIC NEOPLASM MALIGNANT
     Route: 048
     Dates: start: 20091120, end: 20091127
  3. RESERPINE [Concomitant]
     Indication: HYPERTENSION
     Dosage: 2 #
     Route: 048
     Dates: start: 20081101
  4. OXYCODONE HYDROCHLORIDE [Concomitant]
     Indication: BACK PAIN
     Dates: start: 20091119, end: 20091201
  5. OXYGEN [Concomitant]
     Indication: PROPHYLAXIS
     Dates: start: 20091129, end: 20091201
  6. FU FANG KU SHEN [Concomitant]
     Indication: HEPATIC NEOPLASM MALIGNANT
     Dates: start: 20091129, end: 20091201
  7. SODIUM CHLORIDE [Concomitant]
     Indication: FLUID REPLACEMENT
     Dates: start: 20091129, end: 20091201
  8. GLUCOSE [Concomitant]
     Dosage: 50%
     Dates: start: 20091129, end: 20091129
  9. GLUCOSE [Concomitant]
     Dosage: 5%
     Dates: start: 20091130, end: 20091130
  10. GLUCOSE [Concomitant]
     Dosage: 5%
     Dates: start: 20091129, end: 20091201
  11. GLUCOSE [Concomitant]
     Dosage: 10%
     Dates: start: 20091130, end: 20091130
  12. GLUCOSE [Concomitant]
     Dosage: 10%
     Dates: start: 20091201, end: 20091201
  13. GLUCOSE [Concomitant]
     Dosage: 10%
     Dates: start: 20091129, end: 20091130
  14. VITAMIN B6 [Concomitant]
     Indication: MEDICAL DIET
     Dates: start: 20091129, end: 20091201
  15. VITAMIN C [Concomitant]
     Indication: MEDICAL DIET
     Dates: start: 20091129, end: 20091201
  16. SODIUM BICARBONATE [Concomitant]
     Indication: HYPOCAPNIA
     Dates: start: 20091129, end: 20091129
  17. HUMAN INSULIN [Concomitant]
     Indication: PROPHYLAXIS
     Dates: start: 20091130, end: 20091130
  18. HUMAN INSULIN [Concomitant]
     Dates: start: 20091129, end: 20091129
  19. GLUCOSE W/SODIUM CHLORIDE [Concomitant]
     Indication: FLUID REPLACEMENT
     Dates: start: 20091129, end: 20091129
  20. PLASMA [Concomitant]
     Indication: HAEMOGLOBIN DECREASED
     Dates: start: 20091130, end: 20091130
  21. FU FANG KU SHEN [Concomitant]
  22. INSULIN [Concomitant]
     Indication: PROPHYLAXIS
     Dates: start: 20091129, end: 20091130
  23. GLUCOSE [Concomitant]
  24. GLUCOSE [Concomitant]
  25. GLUCOSE [Concomitant]

REACTIONS (2)
  - ACUTE HEPATIC FAILURE [None]
  - RENAL FAILURE ACUTE [None]
